FAERS Safety Report 8010961-X (Version None)
Quarter: 2011Q4

REPORT INFORMATION
  Report Type: 
  Country: None (occurrence: None)
  Receive Date: 20111228
  Receipt Date: 20111219
  Transmission Date: 20120403
  Serious: Yes (Other)
  Sender: FDA-Public Use
  Company Number: JP-ROCHE-1014920

PATIENT
  Sex: Male
  Weight: 55 kg

DRUGS (17)
  1. ACTEMRA [Suspect]
     Indication: RHEUMATOID ARTHRITIS
     Dosage: DOSAGE IS UNCERTAIN.
     Route: 041
     Dates: start: 20110831
  2. ASPIRIN [Concomitant]
     Route: 048
  3. LOXONIN [Concomitant]
     Route: 061
  4. BASEN [Concomitant]
     Indication: DIABETES MELLITUS
     Route: 048
  5. FORTEO [Concomitant]
     Dosage: DOSAGE IS UNCERTAIN.
     Route: 048
  6. LIPITOR [Concomitant]
     Indication: HYPERTENSION
     Route: 048
  7. NORVASC [Concomitant]
     Indication: HYPERTENSION
     Route: 048
  8. ANPLAG [Concomitant]
     Route: 048
  9. PREDNISOLONE [Concomitant]
     Route: 048
     Dates: start: 20111212, end: 20111220
  10. SODIUM BICARBONATE [Concomitant]
     Route: 048
  11. CANDESARTAN CILEXETIL [Concomitant]
     Indication: HYPERTENSION
     Route: 048
  12. PREDNISOLONE [Concomitant]
     Indication: RHEUMATOID ARTHRITIS
     Route: 048
     Dates: end: 20111211
  13. PREDNISOLONE [Concomitant]
     Route: 048
     Dates: start: 20111220
  14. ISOSORBIDE MONONITRATE [Concomitant]
     Indication: HYPERTENSION
     Route: 048
  15. ALLOPURINOL [Concomitant]
     Route: 048
  16. ARGAMATE [Concomitant]
     Route: 048
  17. LANSOPRAZOLE [Concomitant]
     Dosage: DOSAGE IS UNCERTAIN.
     Route: 048

REACTIONS (1)
  - RENAL IMPAIRMENT [None]
